FAERS Safety Report 20807610 (Version 2)
Quarter: 2022Q2

REPORT INFORMATION
  Report Type: Spontaneous
  Country: US (occurrence: US)
  Receive Date: 20220510
  Receipt Date: 20220511
  Transmission Date: 20220720
  Serious: No
  Sender: FDA-Public Use
  Company Number: US-JNJFOC-20220515396

PATIENT

DRUGS (14)
  1. TYLENOL [Suspect]
     Active Substance: ACETAMINOPHEN
     Indication: Product used for unknown indication
     Route: 065
  2. TYLENOL [Suspect]
     Active Substance: ACETAMINOPHEN
     Indication: Influenza
  3. TYLENOL [Suspect]
     Active Substance: ACETAMINOPHEN
     Indication: Nasopharyngitis
  4. TYLENOL [Suspect]
     Active Substance: ACETAMINOPHEN
     Indication: Pyrexia
  5. TYLENOL [Suspect]
     Active Substance: ACETAMINOPHEN
     Indication: Premenstrual pain
  6. TYLENOL [Suspect]
     Active Substance: ACETAMINOPHEN
     Indication: Pain
  7. TYLENOL [Suspect]
     Active Substance: ACETAMINOPHEN
     Indication: Dysmenorrhoea
  8. TYLENOL [Suspect]
     Active Substance: ACETAMINOPHEN
     Indication: Toothache
  9. TYLENOL [Suspect]
     Active Substance: ACETAMINOPHEN
     Indication: Nasopharyngitis
  10. TYLENOL [Suspect]
     Active Substance: ACETAMINOPHEN
     Indication: Myalgia
  11. TYLENOL [Suspect]
     Active Substance: ACETAMINOPHEN
     Indication: Headache
  12. TYLENOL [Suspect]
     Active Substance: ACETAMINOPHEN
     Indication: Arthralgia
  13. TYLENOL [Suspect]
     Active Substance: ACETAMINOPHEN
     Indication: Back pain
  14. TYLENOL [Suspect]
     Active Substance: ACETAMINOPHEN
     Indication: Pain

REACTIONS (1)
  - Drug ineffective [Unknown]
